FAERS Safety Report 7137057-3 (Version None)
Quarter: 2010Q4

REPORT INFORMATION
  Report Type: 
  Country: None (occurrence: None)
  Receive Date: 20101119
  Receipt Date: 20101103
  Transmission Date: 20110411
  Serious: Yes (Other)
  Sender: FDA-Public Use
  Company Number: AUR-APL-2010-02754

PATIENT
  Sex: Female

DRUGS (4)
  1. ZIDOVUDINE [Suspect]
     Indication: HIV INFECTION
  2. ABACAVIR [Suspect]
     Indication: HIV INFECTION
  3. EPIVIR [Suspect]
     Indication: HIV INFECTION
  4. NEVIRAPINE [Suspect]
     Indication: HIV INFECTION

REACTIONS (2)
  - LIPOATROPHY [None]
  - PANCREATITIS [None]
